FAERS Safety Report 7406096-7 (Version None)
Quarter: 2011Q2

REPORT INFORMATION
  Report Type: 
  Country: None (occurrence: None)
  Receive Date: 20110411
  Receipt Date: 20110119
  Transmission Date: 20111010
  Serious: No
  Sender: FDA-Public Use
  Company Number: US-AMGEN-USASP2011003533

PATIENT
  Age: 65 Year
  Sex: Male

DRUGS (6)
  1. VECTIBIX [Suspect]
     Indication: COLORECTAL CANCER METASTATIC
  2. VITAMIN B12                        /00056201/ [Concomitant]
  3. CARDIZEM [Concomitant]
  4. ASPIRIN [Concomitant]
  5. VECTIBIX [Suspect]
     Dosage: 630 MG, QMO
  6. MAGNESIUM [Concomitant]

REACTIONS (1)
  - INFUSION SITE EXTRAVASATION [None]
